FAERS Safety Report 5267099-4 (Version None)
Quarter: 2007Q1

REPORT INFORMATION
  Report Type: 
  Country: None (occurrence: None)
  Receive Date: 20070316
  Receipt Date: 20070312
  Transmission Date: 20070707
  Serious: Yes (Hospitalization)
  Sender: FDA-Public Use
  Company Number: FR-BRISTOL-MYERS SQUIBB COMPANY-13366455

PATIENT
  Age: 54 Year
  Sex: Male

DRUGS (3)
  1. CETUXIMAB [Suspect]
     Indication: SQUAMOUS CELL CARCINOMA
     Route: 041
     Dates: start: 20051206, end: 20060307
  2. CISPLATIN [Suspect]
     Indication: SQUAMOUS CELL CARCINOMA
     Route: 042
     Dates: start: 20051206, end: 20060221
  3. FLUOROURACIL [Suspect]
     Indication: SQUAMOUS CELL CARCINOMA
     Route: 042
     Dates: start: 20051206, end: 20060221

REACTIONS (4)
  - ASTHENIA [None]
  - BRONCHOPNEUMONIA [None]
  - INFECTION [None]
  - RENAL FAILURE ACUTE [None]
